FAERS Safety Report 25768171 (Version 1)
Quarter: 2025Q3

REPORT INFORMATION
  Report Type: Spontaneous
  Country: US (occurrence: US)
  Receive Date: 20250905
  Receipt Date: 20250905
  Transmission Date: 20251021
  Serious: No
  Sender: DOMPE FARMACEUTICI
  Company Number: US-FARMAPROD-202506-1863

PATIENT
  Age: 68 Year
  Sex: Female

DRUGS (5)
  1. OXERVATE [Suspect]
     Active Substance: CENEGERMIN-BKBJ
     Indication: Neurotrophic keratopathy
     Route: 047
     Dates: start: 20250530
  2. OXERVATE [Suspect]
     Active Substance: CENEGERMIN-BKBJ
  3. TOBRAMYCIN [Concomitant]
     Active Substance: TOBRAMYCIN
  4. KETOROLAC [Concomitant]
     Active Substance: KETOROLAC TROMETHAMINE
  5. FAMCICLOVIR [Concomitant]
     Active Substance: FAMCICLOVIR

REACTIONS (5)
  - Eye irritation [Recovered/Resolved]
  - Eyelid pain [Unknown]
  - Lacrimation increased [Unknown]
  - Fracture [Unknown]
  - Fall [Unknown]

NARRATIVE: CASE EVENT DATE: 20250530
